FAERS Safety Report 8511263-5 (Version None)
Quarter: 2012Q3

REPORT INFORMATION
  Report Type: 
  Country: None (occurrence: None)
  Receive Date: 20120716
  Receipt Date: 20120709
  Transmission Date: 20120928
  Serious: No
  Sender: FDA-Public Use
  Company Number: US-BAYER-2012-069792

PATIENT
  Age: 55 Year
  Sex: Female
  Weight: 76 kg

DRUGS (2)
  1. ALEVE (CAPLET) [Suspect]
     Dosage: 2 DF, UNK
     Route: 048
     Dates: start: 20120622
  2. CALCIUM [Concomitant]

REACTIONS (1)
  - NO ADVERSE EVENT [None]
